FAERS Safety Report 17164961 (Version 3)
Quarter: 2020Q4

REPORT INFORMATION
  Report Type: Report from Study
  Country: US (occurrence: US)
  Receive Date: 20191217
  Receipt Date: 20201105
  Transmission Date: 20210113
  Serious: Yes (Hospitalization)
  Sender: FDA-Public Use
  Company Number: US-EISAI MEDICAL RESEARCH-EC-2019-062973

PATIENT
  Age: 59 Year
  Sex: Male
  Weight: 116 kg

DRUGS (24)
  1. LENVIMA [Suspect]
     Active Substance: LENVATINIB
     Route: 048
     Dates: end: 202008
  2. PENICILLIN [Concomitant]
     Active Substance: PENICILLIN
  3. SIMVASTATIN. [Concomitant]
     Active Substance: SIMVASTATIN
  4. ATORVASTATIN [Concomitant]
     Active Substance: ATORVASTATIN
  5. OXYCODONE HYDROCHLORIDE. [Concomitant]
     Active Substance: OXYCODONE HYDROCHLORIDE
  6. METOPROLOL. [Concomitant]
     Active Substance: METOPROLOL
  7. SYNTHROID [Concomitant]
     Active Substance: LEVOTHYROXINE SODIUM
  8. WARFARIN [Concomitant]
     Active Substance: WARFARIN
  9. LEVOTHYROXINE. [Concomitant]
     Active Substance: LEVOTHYROXINE
  10. TOPROL XL [Concomitant]
     Active Substance: METOPROLOL SUCCINATE
  11. METRONIDAZOLE. [Concomitant]
     Active Substance: METRONIDAZOLE
  12. AUGMENTIN [Concomitant]
     Active Substance: AMOXICILLIN\CLAVULANATE POTASSIUM
  13. BUMETANIDE. [Concomitant]
     Active Substance: BUMETANIDE
  14. FENOFIBRATE. [Concomitant]
     Active Substance: FENOFIBRATE
  15. CIPROFLOXACIN. [Concomitant]
     Active Substance: CIPROFLOXACIN
  16. LENVIMA [Suspect]
     Active Substance: LENVATINIB
     Indication: RENAL CELL CARCINOMA
     Route: 048
     Dates: start: 20190920, end: 2019
  17. LENVIMA [Suspect]
     Active Substance: LENVATINIB
     Route: 048
     Dates: start: 20200914
  18. AFINITOR [Concomitant]
     Active Substance: EVEROLIMUS
  19. CLINDAMYCIN. [Concomitant]
     Active Substance: CLINDAMYCIN
  20. IMODIUM A-D [Concomitant]
     Active Substance: LOPERAMIDE HYDROCHLORIDE
  21. LENVIMA [Suspect]
     Active Substance: LENVATINIB
     Indication: BONE NEOPLASM
     Route: 048
  22. IRON [Concomitant]
     Active Substance: IRON
  23. LENVIMA [Suspect]
     Active Substance: LENVATINIB
     Route: 048
     Dates: start: 20200907, end: 20200913
  24. AMOXICILLIN. [Concomitant]
     Active Substance: AMOXICILLIN

REACTIONS (16)
  - Pain in extremity [Unknown]
  - Haemorrhoids [Unknown]
  - Abdominal pain lower [Not Recovered/Not Resolved]
  - Oropharyngeal pain [Not Recovered/Not Resolved]
  - Haemoglobin increased [Unknown]
  - Rash [Unknown]
  - Pruritus [Unknown]
  - Incision site impaired healing [Unknown]
  - Internal haemorrhage [Unknown]
  - Cough [Not Recovered/Not Resolved]
  - Abdominal pain upper [Unknown]
  - Diarrhoea [Unknown]
  - Constipation [Not Recovered/Not Resolved]
  - Gastrointestinal disorder [Not Recovered/Not Resolved]
  - Impaired healing [Not Recovered/Not Resolved]
  - Blood pressure fluctuation [Unknown]

NARRATIVE: CASE EVENT DATE: 2019
